FAERS Safety Report 20892698 (Version 1)
Quarter: 2022Q2

REPORT INFORMATION
  Report Type: Report from Study
  Country: US (occurrence: US)
  Receive Date: 20220531
  Receipt Date: 20220531
  Transmission Date: 20220721
  Serious: No
  Sender: FDA-Public Use
  Company Number: US-ACADIA PHARMACEUTICALS INC.-ACA-2022-PIM-001683

PATIENT
  Sex: Male

DRUGS (7)
  1. NUPLAZID [Suspect]
     Active Substance: PIMAVANSERIN TARTRATE
     Indication: Parkinson^s disease
     Dosage: 34 MILLIGRAM, QD
     Route: 048
     Dates: start: 20210821
  2. ATORVASTATIN [Concomitant]
     Active Substance: ATORVASTATIN
     Dosage: 40 MILLIGRAM
  3. DONEPEZIL [Concomitant]
     Active Substance: DONEPEZIL
     Dosage: 5 MILLIGRAM
  4. LAMOTRIGINE [Concomitant]
     Active Substance: LAMOTRIGINE
     Dosage: 100 MILLIGRAM
  5. MELATONIN [Concomitant]
     Active Substance: MELATONIN
     Dosage: 5 MILLIGRAM
  6. VITAMINS [Concomitant]
     Active Substance: VITAMINS
  7. CARBIDOPA\LEVODOPA [Concomitant]
     Active Substance: CARBIDOPA\LEVODOPA
     Dosage: 25-100 MG

REACTIONS (3)
  - Product dose omission issue [Not Recovered/Not Resolved]
  - COVID-19 [Not Recovered/Not Resolved]
  - Drug ineffective [Not Recovered/Not Resolved]
